FAERS Safety Report 8008634-2 (Version None)
Quarter: 2011Q4

REPORT INFORMATION
  Report Type: 
  Country: None (occurrence: None)
  Receive Date: 20111227
  Receipt Date: 20111214
  Transmission Date: 20120403
  Serious: Yes (Hospitalization)
  Sender: FDA-Public Use
  Company Number: AT-ROCHE-1022060

PATIENT
  Sex: Male
  Weight: 89 kg

DRUGS (7)
  1. BENDAMUSTINE [Suspect]
     Indication: MANTLE CELL LYMPHOMA
     Dosage: LAST DOSE PRIOR TO SAE 24/AUG/2011
     Route: 042
     Dates: start: 20110316
  2. MABTHERA [Suspect]
     Indication: MANTLE CELL LYMPHOMA
     Dosage: LAST DOSE PRIOR TO SAE 17/OCT/2011
     Route: 042
     Dates: start: 20110315
  3. ENALAPRIL MALEATE [Concomitant]
     Dates: start: 20110920
  4. PANTOPRAZOLE SODIUM [Concomitant]
     Dates: start: 20111201
  5. DICLOBENE [Concomitant]
     Dates: start: 20111201
  6. MABTHERA [Suspect]
     Indication: B-CELL LYMPHOMA
  7. BENDAMUSTINE [Suspect]
     Indication: B-CELL LYMPHOMA

REACTIONS (1)
  - RADIUS FRACTURE [None]
